FAERS Safety Report 8450737-2 (Version None)
Quarter: 2012Q2

REPORT INFORMATION
  Report Type: 
  Country: None (occurrence: None)
  Receive Date: 20120613
  Receipt Date: 20120604
  Transmission Date: 20120825
  Serious: Yes (Disabling, Other)
  Sender: FDA-Public Use
  Company Number: AUR-APL-2012-02241

PATIENT
  Age: 54 Year
  Sex: Female
  Weight: 54.4316 kg

DRUGS (3)
  1. SIMVASTATIN [Suspect]
     Indication: BLOOD CHOLESTEROL INCREASED
     Dosage: 1 DOSAGE FORMS (1 DOSAGE FORMS, 1 IN 1 D), ORAL
     Route: 048
     Dates: start: 20120228, end: 20120429
  2. CITALOPRAM HYDROBROMIDE [Concomitant]
  3. NAPROXEN (ALEVE) [Concomitant]

REACTIONS (9)
  - PAIN IN EXTREMITY [None]
  - MUSCLE SPASMS [None]
  - ABASIA [None]
  - PARAESTHESIA [None]
  - FALL [None]
  - BLOOD CREATINE PHOSPHOKINASE INCREASED [None]
  - NO THERAPEUTIC RESPONSE [None]
  - MUSCULAR WEAKNESS [None]
  - HYPOAESTHESIA [None]
